FAERS Safety Report 8469816-9 (Version None)
Quarter: 2012Q2

REPORT INFORMATION
  Report Type: 
  Country: None (occurrence: None)
  Receive Date: 20120626
  Receipt Date: 20120622
  Transmission Date: 20120825
  Serious: Yes (Other)
  Sender: FDA-Public Use
  Company Number: AU-TEVA-336534USA

PATIENT
  Sex: Male
  Weight: 89 kg

DRUGS (15)
  1. INSULIN ASPART [Concomitant]
  2. METFORMIN HCL [Concomitant]
  3. PALONOSETRON [Concomitant]
  4. TREANDA [Suspect]
     Dosage: EVERY 21 DAYS ON DAYS 1 AND DAY 2
     Route: 042
     Dates: start: 20120227
  5. ACETYLSALICYLIC ACID SRT [Concomitant]
     Dates: start: 20040101
  6. DEXAMETHASONE [Concomitant]
     Dates: start: 20120227
  7. MAGNESIUM SULFATE [Concomitant]
     Dates: start: 20120508, end: 20120508
  8. ATORVASTATIN [Concomitant]
  9. LOPERAMIDE [Concomitant]
     Dates: start: 20120618
  10. TREANDA [Suspect]
     Dosage: UID/QD
     Route: 042
     Dates: start: 20120319, end: 20120320
  11. TREANDA [Suspect]
     Dosage: UID/QD
     Route: 042
     Dates: start: 20120411
  12. INSULIN ASPART [Concomitant]
  13. ENOXAPARIN SODIUM [Concomitant]
  14. INSULIN ASPART [Concomitant]
  15. GLICLAZIDE [Concomitant]

REACTIONS (1)
  - ATRIAL FIBRILLATION [None]
